FAERS Safety Report 20854423 (Version 1)
Quarter: 2022Q2

REPORT INFORMATION
  Report Type: Other
  Country: IT (occurrence: None)
  Receive Date: 20220520
  Receipt Date: 20220520
  Transmission Date: 20220721
  Serious: Yes (Other)
  Sender: FDA-Public Use
  Company Number: IT-Invatech-000243

PATIENT
  Age: 78 Year
  Sex: Male

DRUGS (2)
  1. AMANTADINE [Suspect]
     Active Substance: AMANTADINE
     Indication: Parkinson^s disease
     Dosage: 100 MG TWICE DAILY
  2. LEVODOPA [Suspect]
     Active Substance: LEVODOPA
     Indication: Parkinson^s disease

REACTIONS (4)
  - Toxicity to various agents [Unknown]
  - Corneal opacity [Recovered/Resolved]
  - Corneal oedema [Recovered/Resolved]
  - Corneal toxicity [Recovered/Resolved]
